FAERS Safety Report 8297549-0 (Version None)
Quarter: 2012Q2

REPORT INFORMATION
  Report Type: 
  Country: None (occurrence: None)
  Receive Date: 20120419
  Receipt Date: 20120411
  Transmission Date: 20120825
  Serious: Yes (Death)
  Sender: FDA-Public Use
  Company Number: PHEH2012US004684

PATIENT
  Sex: Male
  Weight: 119 kg

DRUGS (1)
  1. MYFORTIC [Suspect]
     Indication: RENAL TRANSPLANT
     Dosage: 360 MG, BID
     Route: 048

REACTIONS (3)
  - FALL [None]
  - DECREASED APPETITE [None]
  - CARDIAC ARREST [None]
